FAERS Safety Report 8619326-0 (Version None)
Quarter: 2012Q3

REPORT INFORMATION
  Report Type: 
  Country: None (occurrence: None)
  Receive Date: 20120824
  Receipt Date: 20120821
  Transmission Date: 20120928
  Serious: Yes (Hospitalization)
  Sender: FDA-Public Use
  Company Number: JP-PFIZER INC-2012179147

PATIENT
  Age: 42 Year
  Sex: Male
  Weight: 58.3 kg

DRUGS (18)
  1. CRIZOTINIB [Suspect]
     Indication: NON-SMALL CELL LUNG CANCER
     Dosage: 250 MG, 2X/DAY
     Route: 048
     Dates: start: 20120621, end: 20120712
  2. PRIMPERAN TAB [Concomitant]
     Dosage: 5 MG, 3X/DAY
     Route: 048
     Dates: start: 20120626, end: 20120713
  3. PROMAC D [Concomitant]
     Dosage: 75 MG, 2X/DAY
     Route: 048
     Dates: start: 20120706
  4. OXYCODONE HYDROCHLORIDE [Concomitant]
     Dosage: 5 MG, AS NEEDED
     Route: 048
     Dates: start: 20100323
  5. FORSENID [Concomitant]
     Dosage: 24 MG, AS NEEDED
     Route: 048
     Dates: start: 20120629
  6. MAGNESIUM OXIDE [Concomitant]
     Dosage: 1 G, 2X/DAY
     Route: 048
     Dates: start: 20100323
  7. LANSOPRAZOLE [Concomitant]
     Dosage: 15 MG, 1X/DAY
     Route: 048
     Dates: start: 20100824
  8. LYRICA [Concomitant]
     Dosage: 75 MG, 2X/DAY
     Route: 048
     Dates: start: 20120611
  9. D ALFA [Concomitant]
     Dosage: 1 UG, 1X/DAY
     Route: 048
     Dates: start: 20120626
  10. RANMARK [Concomitant]
     Dosage: 120 MG, MONTHLY
     Route: 058
     Dates: start: 20120628
  11. NAUZELIN OD [Concomitant]
     Dosage: 10 MG, 3X/DAY
     Route: 048
     Dates: start: 20100726, end: 20120713
  12. CALCIUM LACTATE [Concomitant]
     Dosage: 1 G, 3X/DAY
     Route: 048
     Dates: start: 20120626
  13. LOXONIN [Concomitant]
     Dosage: 60 MG, 3X/DAY
     Route: 048
     Dates: start: 20100323
  14. OXYCONTIN [Concomitant]
     Dosage: 20 MG, 2X/DAY
     Route: 048
     Dates: start: 20120323
  15. PROCHLORPERAZINE [Suspect]
     Dosage: 5 MG, 3X/DAY
     Route: 048
     Dates: start: 20120627, end: 20120713
  16. MUCOSTA [Concomitant]
     Dosage: 100 MG, 3X/DAY
     Route: 048
     Dates: start: 20100706, end: 20120705
  17. GARENOXACIN MESYLATE [Concomitant]
     Dosage: 400 MG, 1X/DAY
     Route: 048
     Dates: start: 20120705, end: 20120709
  18. PREDNISOLONE [Concomitant]
     Dosage: 5 MG, 1X/DAY
     Route: 048
     Dates: start: 20101013

REACTIONS (1)
  - AKATHISIA [None]
